FAERS Safety Report 8736727 (Version 2)
Quarter: 2012Q4

REPORT INFORMATION
  Report Type: 
  Country: US (occurrence: US)
  Receive Date: 20120822
  Receipt Date: 20121126
  Transmission Date: 20130627
  Serious: Yes (Hospitalization)
  Sender: FDA-Public Use
  Company Number: US-BAYER-2012-083722

PATIENT
  Age: 45 Year
  Sex: Female
  Weight: 68.03 kg

DRUGS (11)
  1. YAZ [Suspect]
     Indication: HOT FLASHES
     Dosage: UNK
     Dates: start: 2006, end: 20111204
  2. YAZ [Suspect]
     Indication: PERIMENOPAUSAL SYMPTOMS
  3. YASMIN [Suspect]
     Dosage: UNK
     Dates: start: 2006, end: 20111204
  4. WELLBUTRIN [Concomitant]
     Indication: PREMENSTRUAL SYNDROME
  5. WELCHOL [Concomitant]
  6. RESTASIS [Concomitant]
     Indication: DRY EYES
     Dosage: UNK;Daily
     Route: 047
  7. TENORMIN [Concomitant]
     Indication: PREMATURE VENTRICULAR CONTRACTIONS
     Dosage: 12.5 mg, QD
  8. ZETIA [Concomitant]
     Indication: HIGH CHOLESTEROL
     Dosage: 10 mg, QOD
  9. MULTIVITAMIN [Concomitant]
     Dosage: UNK;daily
  10. B-COMPLEX [Concomitant]
     Dosage: UNk;daily
  11. MELATONIN [Concomitant]
     Dosage: 300 mg, UNK

REACTIONS (7)
  - Pulmonary embolism [None]
  - Injury [None]
  - Pain [None]
  - Emotional distress [None]
  - Anxiety [None]
  - Psychological trauma [None]
  - Pulmonary infarction [None]
